FAERS Safety Report 17938949 (Version 2)
Quarter: 2020Q3

REPORT INFORMATION
  Report Type: Spontaneous
  Country: US (occurrence: US)
  Receive Date: 20200625
  Receipt Date: 20200707
  Transmission Date: 20201103
  Serious: No
  Sender: FDA-Public Use
  Company Number: US-GW PHARMA-202006USGW02231

PATIENT

DRUGS (1)
  1. EPIDIOLEX [Suspect]
     Active Substance: CANNABIDIOL
     Indication: SEIZURE
     Dosage: 500 MILLIGRAM, BID
     Route: 048
     Dates: start: 20190622

REACTIONS (5)
  - Fall [Not Recovered/Not Resolved]
  - Concussion [Unknown]
  - Head injury [Unknown]
  - Seizure [Not Recovered/Not Resolved]
  - Back injury [Unknown]
